FAERS Safety Report 24156689 (Version 1)
Quarter: 2024Q3

REPORT INFORMATION
  Report Type: Report from Study
  Country: US (occurrence: US)
  Receive Date: 20240731
  Receipt Date: 20240731
  Transmission Date: 20241017
  Serious: No
  Sender: MERCK
  Company Number: US-009507513-2407USA012962

PATIENT
  Age: 77 Year
  Sex: Male

DRUGS (1)
  1. MOLNUPIRAVIR [Suspect]
     Active Substance: MOLNUPIRAVIR
     Indication: COVID-19
     Dosage: 4 CAPSULE EVERY 12 HOURS FOR 5 DAYS
     Route: 048
     Dates: start: 20240720, end: 20240724

REACTIONS (3)
  - Diarrhoea [Recovering/Resolving]
  - Expired product administered [Unknown]
  - Product dispensing issue [Unknown]

NARRATIVE: CASE EVENT DATE: 20240720
